FAERS Safety Report 9470520 (Version 1)
Quarter: 2013Q3

REPORT INFORMATION
  Report Type: Spontaneous
  Country: IR (occurrence: None)
  Receive Date: 20130815
  Receipt Date: 20130815
  Transmission Date: 20140515
  Serious: Yes (Other)
  Sender: FDA-Public Use
  Company Number: IPC201308-000315

PATIENT
  Age: 20 Year
  Sex: Male

DRUGS (1)
  1. TRAMADOL (TRAMADOL) (TRAMADOL) [Suspect]

REACTIONS (7)
  - Suicide attempt [None]
  - Toxicity to various agents [None]
  - Loss of consciousness [None]
  - Grand mal convulsion [None]
  - Laceration [None]
  - Tongue injury [None]
  - Incorrect dose administered [None]
